FAERS Safety Report 13747307 (Version 3)
Quarter: 2017Q4

REPORT INFORMATION
  Report Type: Spontaneous
  Country: JP (occurrence: JP)
  Receive Date: 20170712
  Receipt Date: 20171121
  Transmission Date: 20180320
  Serious: No
  Sender: FDA-Public Use
  Company Number: JP-009507513-1707JPN000323J

PATIENT
  Age: 77 Year
  Sex: Female
  Weight: 48 kg

DRUGS (1)
  1. KEYTRUDA [Suspect]
     Active Substance: PEMBROLIZUMAB
     Indication: ACRAL LENTIGINOUS MELANOMA
     Dosage: 2 MG/KG, Q3W
     Route: 041
     Dates: start: 20170421, end: 20170421

REACTIONS (2)
  - Vomiting [Recovered/Resolved]
  - Nausea [Recovered/Resolved]

NARRATIVE: CASE EVENT DATE: 20170503
